FAERS Safety Report 20733142 (Version 1)
Quarter: 2022Q2

REPORT INFORMATION
  Report Type: Report from Study
  Country: US (occurrence: US)
  Receive Date: 20220421
  Receipt Date: 20220421
  Transmission Date: 20220721
  Serious: Yes (Other)
  Sender: FDA-Public Use
  Company Number: US-BRISTOL-MYERS SQUIBB COMPANY-2022-018859

PATIENT
  Age: 59 Year
  Sex: Female
  Weight: 63.50 kg

DRUGS (1)
  1. REVLIMID [Suspect]
     Active Substance: LENALIDOMIDE
     Indication: Plasma cell myeloma
     Dosage: DAILY DAYS 1-21,  28 DAY CYCLE
     Route: 048
     Dates: start: 20220108

REACTIONS (1)
  - Liver disorder [Unknown]
